FAERS Safety Report 8287858-3 (Version None)
Quarter: 2012Q2

REPORT INFORMATION
  Report Type: 
  Country: None (occurrence: None)
  Receive Date: 20120416
  Receipt Date: 20120409
  Transmission Date: 20120825
  Serious: No
  Sender: FDA-Public Use
  Company Number: US-PFIZER INC-2012089381

PATIENT
  Sex: Female
  Weight: 74.83 kg

DRUGS (5)
  1. SIMVASTATIN [Concomitant]
     Indication: BLOOD CHOLESTEROL INCREASED
     Dosage: 20 MG, DAILY
  2. LOSARTAN [Concomitant]
     Indication: HYPERTENSION
     Dosage: 100 MG, DAILY
  3. ASPIRIN [Concomitant]
     Indication: ANTICOAGULANT THERAPY
     Dosage: 50 MG, DAILY
  4. LEVOXYL [Concomitant]
     Indication: THYROID DISORDER
     Dosage: 100 UG, DAILY
  5. XALATAN [Suspect]
     Indication: INTRAOCULAR PRESSURE INCREASED
     Dosage: 1 GTT EACH EYE DAILY
     Route: 047
     Dates: end: 20110101

REACTIONS (2)
  - DENTAL CARIES [None]
  - MUSCLE TWITCHING [None]
